FAERS Safety Report 6255177-2 (Version None)
Quarter: 2009Q2

REPORT INFORMATION
  Report Type: 
  Country: None (occurrence: None)
  Receive Date: 20090630
  Receipt Date: 20090618
  Transmission Date: 20091009
  Serious: Yes (Hospitalization)
  Sender: FDA-Public Use
  Company Number: GXKR2009JP07133

PATIENT
  Age: 84 Year
  Sex: Male

DRUGS (3)
  1. CEFTRIAXONE [Suspect]
     Indication: INFECTION
     Dosage: 2 G, IV DRIP
     Route: 041
     Dates: start: 20090609, end: 20090612
  2. CEFCAPENE PIVOXIL (CEFCAPENE PIVOXIL) [Suspect]
     Dates: start: 20090606, end: 20090612
  3. DICLOFENAC SODIUM [Suspect]
     Dates: start: 20090606, end: 20090612

REACTIONS (2)
  - C-REACTIVE PROTEIN INCREASED [None]
  - RENAL FAILURE ACUTE [None]
